FAERS Safety Report 6660371-2 (Version None)
Quarter: 2010Q1

REPORT INFORMATION
  Report Type: 
  Country: None (occurrence: None)
  Receive Date: 20100330
  Receipt Date: 20100330
  Transmission Date: 20100710
  Serious: No
  Sender: FDA-Public Use
  Company Number: None

PATIENT
  Age: 71 Year
  Sex: Female
  Weight: 52.6173 kg

DRUGS (1)
  1. PRAVASTATIN [Suspect]
     Indication: BLOOD CHOLESTEROL INCREASED
     Dates: start: 20091101, end: 20100301

REACTIONS (7)
  - APPARENT DEATH [None]
  - ASTHENIA [None]
  - BEDRIDDEN [None]
  - IMPAIRED WORK ABILITY [None]
  - MUSCLE ATROPHY [None]
  - PAIN [None]
  - WEIGHT DECREASED [None]
